FAERS Safety Report 9565282 (Version 2)
Quarter: 2014Q2

REPORT INFORMATION
  Report Type: Spontaneous
  Country: US (occurrence: US)
  Receive Date: 20130930
  Receipt Date: 20140618
  Transmission Date: 20141212
  Serious: Yes (Hospitalization, Other)
  Sender: FDA-Public Use
  Company Number: US-009507513-1309USA013647

PATIENT
  Sex: Female
  Weight: 88.6 kg

DRUGS (1)
  1. NUVARING [Suspect]
     Indication: CONTRACEPTION
     Dosage: UNK
     Route: 067
     Dates: start: 201105, end: 20120915

REACTIONS (8)
  - Pleural effusion [Unknown]
  - Pulmonary embolism [Unknown]
  - Lobar pneumonia [Unknown]
  - Knee operation [Unknown]
  - Metrorrhagia [Unknown]
  - Lymphadenopathy [Unknown]
  - Haemoptysis [Unknown]
  - Chest pain [Unknown]
